FAERS Safety Report 19243158 (Version 1)
Quarter: 2021Q2

REPORT INFORMATION
  Report Type: Spontaneous
  Country: US (occurrence: US)
  Receive Date: 20210511
  Receipt Date: 20210511
  Transmission Date: 20210717
  Serious: Yes (Other)
  Sender: FDA-Public Use
  Company Number: US-PFIZER INC-2021470186

PATIENT
  Age: 69 Year
  Sex: Female
  Weight: 45.13 kg

DRUGS (2)
  1. LYRICA [Suspect]
     Active Substance: PREGABALIN
     Indication: NEURALGIA
  2. LYRICA [Suspect]
     Active Substance: PREGABALIN
     Indication: FIBROMYALGIA
     Dosage: 100 MG

REACTIONS (17)
  - Muscle atrophy [Unknown]
  - Pancreatic failure [Unknown]
  - Nervous system disorder [Unknown]
  - Cerebral atrophy [Not Recovered/Not Resolved]
  - Dry skin [Unknown]
  - Body mass index decreased [Unknown]
  - Temperature intolerance [Unknown]
  - Cluster headache [Unknown]
  - Alopecia [Unknown]
  - Burning sensation [Not Recovered/Not Resolved]
  - Cataract [Unknown]
  - Skin exfoliation [Not Recovered/Not Resolved]
  - Sarcopenia [Not Recovered/Not Resolved]
  - Histamine intolerance [Unknown]
  - Near death experience [Unknown]
  - Hypotension [Unknown]
  - Headache [Unknown]
